FAERS Safety Report 12805885 (Version 11)
Quarter: 2017Q3

REPORT INFORMATION
  Report Type: Spontaneous
  Country: US (occurrence: US)
  Receive Date: 20161004
  Receipt Date: 20170913
  Transmission Date: 20171127
  Serious: Yes (Hospitalization)
  Sender: FDA-Public Use
  Company Number: US-PFIZER INC-2016456754

PATIENT
  Age: 79 Year
  Sex: Female
  Weight: 76 kg

DRUGS (7)
  1. IBRANCE [Suspect]
     Active Substance: PALBOCICLIB
     Dosage: 100 MG, CYCLIC (1 CAP D1-D21 Q28 DAYS)
     Route: 048
  2. IBRANCE [Suspect]
     Active Substance: PALBOCICLIB
     Dosage: 100 MG, CYCLIC (DAYS 1-D21 Q28 DAYS)
     Route: 048
  3. IBRANCE [Suspect]
     Active Substance: PALBOCICLIB
     Dosage: 75 MG, CYCLIC (DAY 1-21 Q 28 DAYS)
     Route: 048
     Dates: start: 20160915, end: 20170427
  4. IBRANCE [Suspect]
     Active Substance: PALBOCICLIB
     Dosage: 100 MG, CYCLIC [DAYS 1-21 Q28 DAYS]
     Route: 048
  5. IBRANCE [Suspect]
     Active Substance: PALBOCICLIB
     Dosage: 100 MG, CYCLIC (1 CAP D1-D21 Q28 DAYS)
     Route: 048
     Dates: end: 20161109
  6. IBRANCE [Suspect]
     Active Substance: PALBOCICLIB
     Indication: BREAST CANCER METASTATIC
     Dosage: 100 MG, CYCLIC, (1 CAP D1-D21 Q28 DAYS)
     Route: 048
     Dates: start: 20160915
  7. IBRANCE [Suspect]
     Active Substance: PALBOCICLIB
     Dosage: 100 MG, CYCLIC (1 CAP D1-D21 Q28 DAYS)
     Route: 048

REACTIONS (16)
  - Diarrhoea [Not Recovered/Not Resolved]
  - Tremor [Unknown]
  - Neoplasm progression [Unknown]
  - Intentional product misuse [Unknown]
  - Pyrexia [Unknown]
  - Gait disturbance [Unknown]
  - Asthenia [Unknown]
  - Influenza [Unknown]
  - Hot flush [Not Recovered/Not Resolved]
  - Neuropathy peripheral [Not Recovered/Not Resolved]
  - Arthralgia [Unknown]
  - Fatigue [Unknown]
  - Productive cough [Unknown]
  - Pain in extremity [Unknown]
  - Myalgia [Unknown]
  - Condition aggravated [Not Recovered/Not Resolved]
